FAERS Safety Report 6348927-8 (Version None)
Quarter: 2009Q3

REPORT INFORMATION
  Report Type: 
  Country: None (occurrence: None)
  Receive Date: 20090908
  Receipt Date: 20090826
  Transmission Date: 20100115
  Serious: Yes (Hospitalization)
  Sender: FDA-Public Use
  Company Number: 232909K08USA

PATIENT
  Age: 59 Year
  Sex: Female
  Weight: 63 kg

DRUGS (13)
  1. REBIF [Suspect]
     Indication: MULTIPLE SCLEROSIS
     Dosage: 44 MCG, 3 IN 1 WEEKS, SUBCUTANEOUS
     Route: 058
     Dates: start: 20041210
  2. FENOFIBRATE [Concomitant]
  3. ESTRADIOL (ESTRADIOL /00045401/) [Concomitant]
  4. AMITRIPTYLINE HCL [Concomitant]
  5. METHYLPHENIDATE HCL [Concomitant]
  6. KEPPRA [Concomitant]
  7. BUTORPHANOL (BUTORPHANOL) [Concomitant]
  8. MIRAPEX [Concomitant]
  9. ZOLPIDEM (ZOLPIDEM /00914901/) [Concomitant]
  10. GABAPENTIN [Concomitant]
  11. PROPOXYPHENE (DEXTROPROPOXYPHENE) [Concomitant]
  12. BELLADONNA PHENOBARBITAL TABS (BELLADENAL) [Concomitant]
  13. PROMETHAZINE [Concomitant]

REACTIONS (10)
  - CARDIOMEGALY [None]
  - CHOLECYSTITIS [None]
  - CHOLELITHIASIS [None]
  - GALLBLADDER DISORDER [None]
  - GALLBLADDER NON-FUNCTIONING [None]
  - HYPERTENSION [None]
  - KIDNEY ENLARGEMENT [None]
  - POSTOPERATIVE WOUND INFECTION [None]
  - RENAL CYST [None]
  - RENAL FAILURE [None]
